FAERS Safety Report 17636353 (Version 1)
Quarter: 2020Q2

REPORT INFORMATION
  Report Type: Spontaneous
  Country: NL (occurrence: NL)
  Receive Date: 20200407
  Receipt Date: 20200407
  Transmission Date: 20200713
  Serious: Yes (Hospitalization)
  Sender: FDA-Public Use
  Company Number: NL-BAYER-2020-055789

PATIENT
  Age: 65 Year
  Sex: Female

DRUGS (1)
  1. ULTRAVIST [Suspect]
     Active Substance: IOPROMIDE
     Indication: COMPUTERISED TOMOGRAM
     Dosage: 110 ML, ONCE
     Route: 042
     Dates: start: 20191022

REACTIONS (4)
  - Eye irritation [Recovered/Resolved]
  - Lacrimation increased [Recovered/Resolved]
  - Palatal disorder [Recovered/Resolved]
  - Sneezing [Recovered/Resolved]

NARRATIVE: CASE EVENT DATE: 20191022
